FAERS Safety Report 4847137-0 (Version None)
Quarter: 2005Q4

REPORT INFORMATION
  Report Type: 
  Country: None (occurrence: None)
  Receive Date: 20051206
  Receipt Date: 20051206
  Transmission Date: 20060501
  Serious: Yes (Other)
  Sender: FDA-Public Use
  Company Number: None

PATIENT
  Sex: Female
  Weight: 80.7403 kg

DRUGS (1)
  1. LYRICA [Suspect]
     Indication: ARTHRALGIA
     Dosage: 50 MG 1 TO 3 X A DAY  ORAL
     Route: 048
     Dates: start: 20051003, end: 20051028

REACTIONS (2)
  - ARTHRALGIA [None]
  - JOINT SWELLING [None]
